FAERS Safety Report 4924477-8 (Version None)
Quarter: 2006Q1

REPORT INFORMATION
  Report Type: 
  Country: None (occurrence: None)
  Receive Date: 20060221
  Receipt Date: 20060216
  Transmission Date: 20060701
  Serious: Yes (Hospitalization)
  Sender: FDA-Public Use
  Company Number: S05-USA-04918-01

PATIENT
  Age: 77 Year
  Sex: Female

DRUGS (7)
  1. NAMENDA [Suspect]
     Indication: DEMENTIA ALZHEIMER'S TYPE
     Dosage: 5 MG BID, PO
     Route: 048
     Dates: start: 20051101, end: 20051101
  2. NAMENDA [Suspect]
     Indication: DEMENTIA ALZHEIMER'S TYPE
     Dosage: 5 MG QD, PO
     Route: 048
     Dates: start: 20051101, end: 20051101
  3. UNIRETIC [Suspect]
     Indication: HYPERTENSION
  4. ARICEPT (CONEPEZIL HYDROCHLORIDE) [Concomitant]
  5. ZOLOFT [Concomitant]
  6. PLAVIX [Concomitant]
  7. ASPIRIN [Concomitant]

REACTIONS (2)
  - CONFUSIONAL STATE [None]
  - HYPONATRAEMIA [None]
